FAERS Safety Report 21828825 (Version 2)
Quarter: 2023Q1

REPORT INFORMATION
  Report Type: Report from Study
  Country: US (occurrence: US)
  Receive Date: 20230106
  Receipt Date: 20230314
  Transmission Date: 20230418
  Serious: Yes (Other)
  Sender: FDA-Public Use
  Company Number: US-ABBVIE-4258768

PATIENT
  Age: 66 Year
  Sex: Female
  Weight: 77.11 kg

DRUGS (2)
  1. RINVOQ [Suspect]
     Active Substance: UPADACITINIB
     Indication: Rheumatoid arthritis
     Route: 048
     Dates: start: 2019
  2. MELOXICAM [Concomitant]
     Active Substance: MELOXICAM
     Indication: Inflammation

REACTIONS (3)
  - Arthralgia [Recovering/Resolving]
  - Fall [Unknown]
  - Limb injury [Unknown]

NARRATIVE: CASE EVENT DATE: 20220501
